FAERS Safety Report 12784691 (Version 1)
Quarter: 2016Q3

REPORT INFORMATION
  Report Type: Spontaneous
  Country: US (occurrence: US)
  Receive Date: 20160927
  Receipt Date: 20160927
  Transmission Date: 20161109
  Serious: Yes (Other)
  Sender: FDA-Public Use
  Company Number: US-BAXTER-2016BAX049056

PATIENT
  Age: 61 Year
  Sex: Female

DRUGS (7)
  1. CYCLOPHOSPHAMIDE FOR INJECTION, USP [Suspect]
     Active Substance: CYCLOPHOSPHAMIDE
     Indication: INVASIVE DUCTAL BREAST CARCINOMA
     Route: 065
  2. XGEVA [Suspect]
     Active Substance: DENOSUMAB
     Route: 065
     Dates: start: 201603
  3. ARIMIDEX [Suspect]
     Active Substance: ANASTROZOLE
     Indication: INVASIVE DUCTAL BREAST CARCINOMA
     Route: 065
     Dates: start: 200910
  4. DOXORUBICIN [Suspect]
     Active Substance: DOXORUBICIN
     Indication: INVASIVE DUCTAL BREAST CARCINOMA
     Route: 065
  5. XGEVA [Suspect]
     Active Substance: DENOSUMAB
     Indication: BREAST CANCER METASTATIC
     Route: 065
     Dates: start: 201311
  6. TAXOL [Suspect]
     Active Substance: PACLITAXEL
     Indication: INVASIVE DUCTAL BREAST CARCINOMA
     Route: 065
  7. FASLODEX [Suspect]
     Active Substance: FULVESTRANT
     Indication: BREAST CANCER METASTATIC
     Route: 065
     Dates: start: 201311

REACTIONS (13)
  - Pulmonary mass [Unknown]
  - Hyperhidrosis [Unknown]
  - Chills [Unknown]
  - Lymphoedema [Unknown]
  - Lymphoedema [Unknown]
  - Blood count abnormal [Unknown]
  - Cough [Unknown]
  - Back pain [Recovered/Resolved]
  - Hot flush [Unknown]
  - Oropharyngeal pain [Recovered/Resolved]
  - Metastases to bone [Unknown]
  - Disease progression [Unknown]
  - Breast cancer metastatic [Unknown]

NARRATIVE: CASE EVENT DATE: 20160316
